FAERS Safety Report 21433952 (Version 1)
Quarter: 2022Q4

REPORT INFORMATION
  Report Type: Report from Study
  Country: CA (occurrence: CA)
  Receive Date: 20221010
  Receipt Date: 20221010
  Transmission Date: 20230113
  Serious: Yes (Other)
  Sender: FDA-Public Use
  Company Number: CA-BAYER-2022A137620

PATIENT
  Age: 32 Year
  Sex: Female

DRUGS (1)
  1. EYLEA [Suspect]
     Active Substance: AFLIBERCEPT
     Indication: Age-related macular degeneration
     Dosage: UNK, SOLUTION FOR INJECTION
     Dates: start: 2017

REACTIONS (3)
  - Glaucoma [Not Recovered/Not Resolved]
  - Glaucoma surgery [Not Recovered/Not Resolved]
  - Visual impairment [Not Recovered/Not Resolved]
